FAERS Safety Report 15283903 (Version 7)
Quarter: 2018Q4

REPORT INFORMATION
  Report Type: Report from Study
  Country: AR (occurrence: AR)
  Receive Date: 20180816
  Receipt Date: 20181120
  Transmission Date: 20190204
  Serious: Yes (Hospitalization)
  Sender: FDA-Public Use
  Company Number: PHHY2018AR070534

PATIENT
  Age: 36 Year
  Sex: Female

DRUGS (2)
  1. GILENYA [Suspect]
     Active Substance: FINGOLIMOD HYDROCHLORIDE
     Indication: MULTIPLE SCLEROSIS
     Dosage: UNK UNK, QD
     Route: 065
     Dates: start: 20180106
  2. GILENYA [Suspect]
     Active Substance: FINGOLIMOD HYDROCHLORIDE
     Dosage: 0.5 MG, QD
     Route: 065
     Dates: start: 20180123, end: 20180604

REACTIONS (27)
  - Malaise [Not Recovered/Not Resolved]
  - Flushing [Unknown]
  - Bradycardia [Unknown]
  - Gait inability [Not Recovered/Not Resolved]
  - Osteomyelitis [Not Recovered/Not Resolved]
  - Complement factor C4 decreased [Unknown]
  - Skin swelling [Unknown]
  - Depressed mood [Unknown]
  - Mouth swelling [Unknown]
  - Angioedema [Not Recovered/Not Resolved]
  - Erythromelalgia [Not Recovered/Not Resolved]
  - Toxicity to various agents [Unknown]
  - Oropharyngeal swelling [Unknown]
  - Rash [Unknown]
  - Dysphonia [Unknown]
  - Laryngeal oedema [Unknown]
  - Erythema [Not Recovered/Not Resolved]
  - Stress [Unknown]
  - Dermatitis [Not Recovered/Not Resolved]
  - Oedema peripheral [Not Recovered/Not Resolved]
  - Swollen tongue [Unknown]
  - Coronary artery insufficiency [Not Recovered/Not Resolved]
  - Energy increased [Not Recovered/Not Resolved]
  - Anaphylactic reaction [Recovering/Resolving]
  - Urticaria [Unknown]
  - Papule [Unknown]
  - Discomfort [Unknown]

NARRATIVE: CASE EVENT DATE: 201804
